FAERS Safety Report 4545797-5 (Version None)
Quarter: 2005Q1

REPORT INFORMATION
  Report Type: 
  Country: None (occurrence: None)
  Receive Date: 20050103
  Receipt Date: 20041214
  Transmission Date: 20050727
  Serious: Yes (Other)
  Sender: FDA-Public Use
  Company Number: USA041286115

PATIENT
  Age: 60 Year
  Sex: Female
  Weight: 96 kg

DRUGS (2)
  1. HUMULIN 70/30 [Suspect]
     Dosage: 25 U/2 DAY
     Dates: start: 19970101
  2. GLUCOPHAGE [Concomitant]

REACTIONS (4)
  - BREAST CANCER [None]
  - PHARMACEUTICAL PRODUCT COMPLAINT [None]
  - VISION BLURRED [None]
  - WEIGHT INCREASED [None]
